FAERS Safety Report 9417253 (Version 1)
Quarter: 2013Q3

REPORT INFORMATION
  Report Type: Other
  Country: DE (occurrence: TR)
  Receive Date: 20130724
  Receipt Date: 20130724
  Transmission Date: 20140515
  Serious: Yes (Other)
  Sender: FDA-Public Use
  Company Number: DE-ACTELION-A-NJ2013-86017

PATIENT
  Age: 30 Year
  Sex: Female

DRUGS (5)
  1. VENTAVIS BAYER SCHERING [Suspect]
     Indication: PULMONARY ARTERIAL HYPERTENSION
     Dosage: 10-20 MCG, 7-9 TIMES
     Route: 055
  2. VENTAVIS BAYER SCHERING [Suspect]
     Dosage: 2 NG/KG, PER MIN
     Route: 042
  3. SILDENAFIL [Suspect]
     Dosage: 10-20 MG, TID
  4. HEPARIN [Suspect]
  5. BETAMETHASONE [Concomitant]

REACTIONS (4)
  - Premature delivery [Unknown]
  - Exposure during pregnancy [Unknown]
  - Off label use [Unknown]
  - Therapeutic response unexpected [Unknown]
